FAERS Safety Report 12449065 (Version 2)
Quarter: 2016Q2

REPORT INFORMATION
  Report Type: Spontaneous
  Country: CN (occurrence: CN)
  Receive Date: 20160608
  Receipt Date: 20160617
  Transmission Date: 20160815
  Serious: No
  Sender: FDA-Public Use
  Company Number: CN-009507513-1509CHN014119

PATIENT
  Age: 71 Year
  Sex: Male
  Weight: 62 kg

DRUGS (14)
  1. LIDOCAINE HYDROCHLORIDE. [Concomitant]
     Active Substance: LIDOCAINE HYDROCHLORIDE
     Indication: ANAESTHESIA
     Dosage: 0.1 G, ONCE
     Route: 058
     Dates: start: 20150915, end: 20150915
  2. EMEND [Suspect]
     Active Substance: APREPITANT
     Indication: PROPHYLAXIS OF NAUSEA AND VOMITING
     Dosage: 125 MG, ONCE (DAY 1)
     Route: 048
     Dates: start: 20150916, end: 20150916
  3. GLYCERIN. [Concomitant]
     Active Substance: GLYCERIN
     Indication: CONSTIPATION PROPHYLAXIS
     Dosage: STRENGTH UNKNOWN; 110 ML/CC, ONCE, ST, PLUG AGENT
     Route: 054
     Dates: start: 20150918, end: 20150918
  4. CISPLATIN. [Concomitant]
     Active Substance: CISPLATIN
     Indication: CHEMOTHERAPY
     Dosage: 40 MG, QD; D1 TO D3; TREATMENT REGIMEN: CISPLATIN (DDP) AND ETOPOSIDE (VP16); TREATMENT CYCLE: 1/UNK
     Route: 041
     Dates: start: 20150916, end: 20150918
  5. SHEN QI FU ZHENG ZHU SHE YE [Concomitant]
     Indication: ADJUVANT THERAPY
     Dosage: 250 ML/CC, QD
     Route: 041
     Dates: start: 20150916, end: 20150920
  6. IRBESARTAN. [Concomitant]
     Active Substance: IRBESARTAN
     Indication: HYPERTENSION
     Dosage: 1 TABLET, QD
     Route: 048
  7. LENTINAN [Concomitant]
     Active Substance: LENTINAN
     Indication: ADJUVANT THERAPY
     Dosage: STRENGTH UNKNOWN; 1 MG, ONCE
     Route: 041
     Dates: start: 20150918, end: 20150918
  8. EMEND [Suspect]
     Active Substance: APREPITANT
     Dosage: 80 MG, ONCE (DAY 3)
     Route: 048
     Dates: start: 20150918, end: 20150918
  9. OMEPRAZOLE SODIUM [Concomitant]
     Active Substance: OMEPRAZOLE SODIUM
     Indication: PROPHYLAXIS AGAINST GASTROINTESTINAL ULCER
     Dosage: 40 MG, QD
     Route: 041
     Dates: start: 20150916, end: 20150920
  10. GLICLAZIDE [Concomitant]
     Active Substance: GLICLAZIDE
     Indication: DIABETES MELLITUS
     Dosage: 30 MG, QD
     Route: 048
  11. ETOPOSIDE. [Concomitant]
     Active Substance: ETOPOSIDE
     Indication: CHEMOTHERAPY
     Dosage: 0.1 G, QD, D1 TO D5; TREATMENT REGIMEN: ETOPOSIDE (VP16) AND CISPLATIN (DDP); TREATMENT CYCLE:1/UNK
     Route: 041
     Dates: start: 20150916, end: 20150920
  12. METFORMIN [Concomitant]
     Active Substance: METFORMIN HYDROCHLORIDE
     Indication: DIABETES MELLITUS
     Dosage: STRENGTH UNKNOWN; 1 G, QD
     Route: 048
  13. PALONOSETRON HYDROCHLORIDE. [Concomitant]
     Active Substance: PALONOSETRON HYDROCHLORIDE
     Indication: PROPHYLAXIS OF NAUSEA AND VOMITING
     Dosage: 0.25 MG, QOD
     Route: 041
     Dates: start: 20150916, end: 20150920
  14. EMEND [Suspect]
     Active Substance: APREPITANT
     Dosage: 80 MG, ONCE (DAY 2)
     Route: 048
     Dates: start: 20150917, end: 20150917

REACTIONS (5)
  - Decreased appetite [Recovered/Resolved]
  - Hyponatraemia [Recovered/Resolved]
  - Alanine aminotransferase increased [Recovered/Resolved]
  - Asthenia [Recovered/Resolved]
  - Aspartate aminotransferase increased [Recovered/Resolved]

NARRATIVE: CASE EVENT DATE: 20150917
